FAERS Safety Report 4311145-9 (Version None)
Quarter: 2004Q1

REPORT INFORMATION
  Report Type: 
  Country: None (occurrence: None)
  Receive Date: 20040302
  Receipt Date: 20040302
  Transmission Date: 20041129
  Serious: Yes (Other)
  Sender: FDA-Public Use
  Company Number: None

PATIENT
  Age: 61 Year
  Sex: Female

DRUGS (2)
  1. TEMAZEPAM [Suspect]
     Indication: ARTHRALGIA
     Dosage: 1 CAP HS
     Dates: start: 20040213, end: 20040216
  2. TEMAZEPAM [Suspect]
     Indication: INSOMNIA
     Dosage: 1 CAP HS
     Dates: start: 20040213, end: 20040216

REACTIONS (3)
  - DRUG INEFFECTIVE [None]
  - INSOMNIA [None]
  - PHARMACEUTICAL PRODUCT COMPLAINT [None]
